FAERS Safety Report 19952300 (Version 1)
Quarter: 2021Q4

REPORT INFORMATION
  Report Type: Report from Study
  Country: US (occurrence: US)
  Receive Date: 20211013
  Receipt Date: 20211013
  Transmission Date: 20220303
  Serious: Yes (Hospitalization)
  Sender: FDA-Public Use
  Company Number: US-TAKEDA-2021TUS057756

PATIENT
  Age: 74 Year
  Sex: Male
  Weight: 83.1 kg

DRUGS (3)
  1. IXAZOMIB [Suspect]
     Active Substance: IXAZOMIB
     Indication: Mantle cell lymphoma
     Dosage: 4 MILLIGRAM
     Route: 065
     Dates: start: 20210809
  2. IBRUTINIB [Suspect]
     Active Substance: IBRUTINIB
     Indication: Mantle cell lymphoma
     Dosage: 560 MILLIGRAM
     Route: 065
     Dates: start: 20210809, end: 20210914
  3. IBRUTINIB [Suspect]
     Active Substance: IBRUTINIB
     Dosage: UNK
     Route: 065
     Dates: start: 20210916

REACTIONS (1)
  - Haematochezia [Recovered/Resolved]

NARRATIVE: CASE EVENT DATE: 20210914
